FAERS Safety Report 8570424-X (Version None)
Quarter: 2012Q3

REPORT INFORMATION
  Report Type: 
  Country: None (occurrence: None)
  Receive Date: 20120803
  Receipt Date: 20120726
  Transmission Date: 20120928
  Serious: No
  Sender: FDA-Public Use
  Company Number: US-009507513-1207USA011822

PATIENT

DRUGS (2)
  1. OXYCODONE AND ACETAMINOPHEN [Concomitant]
     Indication: PROCEDURAL PAIN
  2. PRINIVIL [Suspect]
     Route: 048

REACTIONS (1)
  - ANGIOEDEMA [None]
